FAERS Safety Report 22038781 (Version 1)
Quarter: 2023Q1

REPORT INFORMATION
  Report Type: Spontaneous
  Country: US (occurrence: US)
  Receive Date: 20230227
  Receipt Date: 20230227
  Transmission Date: 20230418
  Serious: No
  Sender: FDA-Public Use
  Company Number: US-SA-SAC20230220001331

PATIENT

DRUGS (1)
  1. FABRAZYME [Suspect]
     Active Substance: AGALSIDASE BETA
     Indication: Arginase deficiency
     Dosage: UNKNOWN
     Route: 065
     Dates: start: 20230215

REACTIONS (1)
  - Product use in unapproved indication [Unknown]
